FAERS Safety Report 21112304 (Version 3)
Quarter: 2025Q2

REPORT INFORMATION
  Report Type: Spontaneous
  Country: CN (occurrence: CN)
  Receive Date: 20220721
  Receipt Date: 20250507
  Transmission Date: 20250716
  Serious: Yes (Death)
  Sender: NOVARTIS
  Company Number: CN-NOVARTISPH-NVSC2022CN165296

PATIENT

DRUGS (3)
  1. CYCLOSPORINE [Suspect]
     Active Substance: CYCLOSPORINE
     Indication: Prophylaxis against graft versus host disease
     Dosage: 2-3 MG/KG, QD
     Route: 065
  2. AZACITIDINE [Concomitant]
     Active Substance: AZACITIDINE
     Indication: Allogenic stem cell transplantation
     Dosage: 75 MG/M2, QD (REPEATED ONCE EVERY 6 - 8 WEEKS, UP TO 6 COURSES OF TREATMENT)
     Route: 058
  3. AZACITIDINE [Concomitant]
     Active Substance: AZACITIDINE
     Indication: Acute myeloid leukaemia

REACTIONS (2)
  - Pneumonia [Fatal]
  - Graft versus host disease in liver [Fatal]
